FAERS Safety Report 5962899-7 (Version None)
Quarter: 2008Q4

REPORT INFORMATION
  Report Type: 
  Country: None (occurrence: None)
  Receive Date: 20081119
  Receipt Date: 20081119
  Transmission Date: 20090506
  Serious: Yes (Hospitalization)
  Sender: FDA-Public Use
  Company Number: None

PATIENT
  Sex: Female
  Weight: 57 kg

DRUGS (2)
  1. TAXOL [Suspect]
     Dosage: 200 MG
     Dates: end: 20081022
  2. CARBOPLATIN [Suspect]
     Dosage: 570 MG
     Dates: end: 20081022

REACTIONS (3)
  - ABDOMINAL PAIN [None]
  - CONSTIPATION [None]
  - PROCEDURAL PAIN [None]
